FAERS Safety Report 25471961 (Version 1)
Quarter: 2025Q2

REPORT INFORMATION
  Report Type: Spontaneous
  Country: PT (occurrence: None)
  Receive Date: 20250624
  Receipt Date: 20250624
  Transmission Date: 20250717
  Serious: Yes (Hospitalization)
  Sender: ENCUBE ETHICALS
  Company Number: PT-Encube-001974

PATIENT
  Age: 44 Year
  Sex: Female

DRUGS (2)
  1. TACROLIMUS [Suspect]
     Active Substance: TACROLIMUS
     Indication: Prophylaxis against transplant rejection
  2. PREDNISOLONE [Suspect]
     Active Substance: PREDNISOLONE
     Indication: Prophylaxis against transplant rejection

REACTIONS (5)
  - Small intestinal obstruction [Recovering/Resolving]
  - Renal impairment [Recovering/Resolving]
  - Mycobacterial infection [Recovering/Resolving]
  - Hypochromic anaemia [Recovering/Resolving]
  - Off label use [Unknown]
